FAERS Safety Report 17290850 (Version 1)
Quarter: 2020Q1

REPORT INFORMATION
  Report Type: Spontaneous
  Country: US (occurrence: US)
  Receive Date: 20200121
  Receipt Date: 20200121
  Transmission Date: 20200409
  Serious: No
  Sender: FDA-Public Use
  Company Number: US-GLAXOSMITHKLINE-US2020AMR006438

PATIENT
  Sex: Female

DRUGS (1)
  1. ACYCLOVIR TABLET [Suspect]
     Active Substance: ACYCLOVIR
     Indication: PRODUCT USED FOR UNKNOWN INDICATION
     Dosage: 1 DF EVERY 4 DAYS
     Route: 065
     Dates: start: 2019

REACTIONS (2)
  - Blister [Unknown]
  - Herpes simplex [Unknown]

NARRATIVE: CASE EVENT DATE: 201912
